FAERS Safety Report 5613407-1 (Version None)
Quarter: 2008Q1

REPORT INFORMATION
  Report Type: 
  Country: None (occurrence: None)
  Receive Date: 20080129
  Receipt Date: 20080114
  Transmission Date: 20080703
  Serious: Yes (Hospitalization)
  Sender: FDA-Public Use
  Company Number: 2008MB000007

PATIENT
  Age: 3 Year
  Sex: Female

DRUGS (1)
  1. KEFLEX [Suspect]
     Indication: PHARYNGOLARYNGEAL PAIN

REACTIONS (19)
  - ANORECTAL DISORDER [None]
  - BLADDER DISORDER [None]
  - CHAPPED LIPS [None]
  - CONJUNCTIVAL HYPERAEMIA [None]
  - CRYING [None]
  - DEHYDRATION [None]
  - HAEMOGLOBIN DECREASED [None]
  - HEPATITIS ACUTE [None]
  - HEPATITIS VIRAL [None]
  - HEPATOMEGALY [None]
  - HYPONATRAEMIA [None]
  - IRRITABILITY [None]
  - KAWASAKI'S DISEASE [None]
  - NAIL DISORDER [None]
  - NEUTROPHIL PERCENTAGE INCREASED [None]
  - RASH [None]
  - SKIN EXFOLIATION [None]
  - TENDERNESS [None]
  - THROMBOCYTHAEMIA [None]
